FAERS Safety Report 4835416-2 (Version None)
Quarter: 2005Q4

REPORT INFORMATION
  Report Type: 
  Country: None (occurrence: None)
  Receive Date: 20051117
  Receipt Date: 20051103
  Transmission Date: 20060501
  Serious: Yes (Other)
  Sender: FDA-Public Use
  Company Number: 200511818BWH

PATIENT
  Age: 76 Year
  Sex: Female
  Weight: 50.8029 kg

DRUGS (15)
  1. CIPRO [Suspect]
     Indication: CYSTITIS
     Dosage: 500 MG, BID, ORAL
     Route: 048
     Dates: start: 20050602
  2. CIPRO [Suspect]
     Indication: DIVERTICULITIS
     Dosage: 500 MG, BID, ORAL
     Route: 048
     Dates: start: 20050602
  3. CIPRO [Suspect]
     Indication: CYSTITIS
     Dosage: 500 MG, BID, ORAL
     Route: 048
     Dates: start: 20050707
  4. CIPRO [Suspect]
     Indication: DIVERTICULITIS
     Dosage: 500 MG, BID, ORAL
     Route: 048
     Dates: start: 20050707
  5. CAPTOPRIL [Concomitant]
  6. METOPROLOL [Concomitant]
  7. NAPROXEN [Concomitant]
  8. FUROSEMIDE [Concomitant]
  9. ACTONEL [Concomitant]
  10. LORATADINE [Concomitant]
  11. ZOCOR [Concomitant]
  12. PROTONIX [Concomitant]
  13. METFORMIN [Concomitant]
  14. AMTRIPLINE [Concomitant]
  15. LEVAQUIN [Concomitant]

REACTIONS (2)
  - BLOOD PRESSURE INCREASED [None]
  - DIVERTICULITIS [None]
